FAERS Safety Report 9003465 (Version 1)
Quarter: 2013Q1

REPORT INFORMATION
  Report Type: Spontaneous
  Country: HR (occurrence: HR)
  Receive Date: 20130108
  Receipt Date: 20130108
  Transmission Date: 20140127
  Serious: Yes (Other)
  Sender: FDA-Public Use
  Company Number: PHHY2013HR001388

PATIENT
  Age: 12 Year
  Sex: Male

DRUGS (4)
  1. CLINDAMYCIN HYDROCHLORIDE [Suspect]
     Indication: TONSILLITIS
     Dosage: 150 MG, TID
     Route: 048
     Dates: start: 20121016, end: 20121024
  2. SUMAMED [Suspect]
     Indication: TONSILLITIS
     Dosage: 250 MG, QD
     Route: 048
     Dates: start: 20120928, end: 20120930
  3. PHENOXYMETHYLPENICILLIN [Suspect]
     Indication: TONSILLITIS
     Dosage: 1500000 IU, TID
     Route: 048
     Dates: start: 20121002, end: 20121007
  4. BELODIN [Concomitant]
     Indication: HYPERSENSITIVITY
     Dosage: 1 DF, QD
     Route: 048
     Dates: start: 20121008, end: 20121028

REACTIONS (8)
  - Fatigue [Recovered/Resolved with Sequelae]
  - Asthenia [Recovered/Resolved with Sequelae]
  - Gastritis [Unknown]
  - Indifference [Unknown]
  - Diarrhoea [Recovered/Resolved with Sequelae]
  - Rash [None]
  - Rash erythematous [None]
  - No therapeutic response [None]
